FAERS Safety Report 4396954-2 (Version None)
Quarter: 2004Q3

REPORT INFORMATION
  Report Type: 
  Country: None (occurrence: None)
  Receive Date: 20040709
  Receipt Date: 20040702
  Transmission Date: 20050211
  Serious: Yes (Hospitalization)
  Sender: FDA-Public Use
  Company Number: A044-002-005079

PATIENT
  Age: 72 Year
  Sex: Male

DRUGS (1)
  1. ARICEPT [Suspect]
     Dosage: SEE IMAGE
     Route: 048

REACTIONS (1)
  - ARRHYTHMIA [None]
